FAERS Safety Report 16839181 (Version 3)
Quarter: 2019Q4

REPORT INFORMATION
  Report Type: Spontaneous
  Country: US (occurrence: US)
  Receive Date: 20190923
  Receipt Date: 20191122
  Transmission Date: 20200122
  Serious: Yes (Death, Other)
  Sender: FDA-Public Use
  Company Number: US-PFIZER INC-2019404560

PATIENT
  Age: 52 Year
  Sex: Female

DRUGS (30)
  1. ALLOPURINOL. [Concomitant]
     Active Substance: ALLOPURINOL
     Indication: GOUT
     Dosage: 300 MG, 1X/DAY
     Route: 048
  2. LEVOTHYROXINE. [Concomitant]
     Active Substance: LEVOTHYROXINE
     Indication: HYPOTHYROIDISM
     Dosage: 50 UG, 1X/DAY(QAM,EVEERY MORNING)
     Route: 048
  3. MEROPENEM. [Concomitant]
     Active Substance: MEROPENEM
     Indication: ARTHRITIS BACTERIAL
     Dosage: 1 G, 3X/DAY (EVERY EIGHT HOURS FOR 2 DAYS)
     Route: 042
  4. BESPONSA [Suspect]
     Active Substance: INOTUZUMAB OZOGAMICIN
     Indication: LEUKAEMIA
     Dosage: 0.5 MG/M2, CYCLIC(2CYCLES)
     Route: 042
     Dates: start: 20190414, end: 20190510
  5. BESPONSA [Suspect]
     Active Substance: INOTUZUMAB OZOGAMICIN
     Indication: B-CELL TYPE ACUTE LEUKAEMIA
  6. ACYCLOVIR [ACICLOVIR] [Concomitant]
     Active Substance: ACYCLOVIR
     Indication: ANTIVIRAL PROPHYLAXIS
     Dosage: 800 MG, 2X/DAY
     Route: 048
  7. CELECOXIB. [Concomitant]
     Active Substance: CELECOXIB
     Indication: ARTHRALGIA
     Dosage: 200 MG, 2X/DAY (ADMINISTER WITH FOOD)
     Route: 048
  8. CELECOXIB. [Concomitant]
     Active Substance: CELECOXIB
     Indication: ARTHRITIS BACTERIAL
  9. SODIUM CHLORIDE 0.9% [Concomitant]
     Active Substance: SODIUM CHLORIDE
     Dosage: 10 ML, AS NEEDED
     Route: 042
  10. POSACONAZOLE [Concomitant]
     Active Substance: POSACONAZOLE
     Indication: ANTIFUNGAL PROPHYLAXIS
     Dosage: 300 MG, 1X/DAY
     Route: 048
  11. PRAMIPEXOLE. [Concomitant]
     Active Substance: PRAMIPEXOLE
     Indication: RESTLESS LEGS SYNDROME
     Dosage: 0.125 MG, 1X/DAY(QHS(AT BEDTIME)
     Route: 048
  12. PROCHLORPERAZINE MALEATE. [Concomitant]
     Active Substance: PROCHLORPERAZINE MALEATE
     Indication: NAUSEA
     Dosage: 5 MG, FOUR TIMES DAILY AS NEEDED (MAX DOSE: 40 MG/DAY)
  13. ALTEPLASE. [Concomitant]
     Active Substance: ALTEPLASE
     Dosage: 2 MG, AS NEEDED(LNTRACATHETER ROUTE)
  14. CYCLOSPORINE. [Concomitant]
     Active Substance: CYCLOSPORINE
     Indication: BONE MARROW TRANSPLANT
     Dosage: 200 MG, 2X/DAY
     Route: 048
     Dates: start: 20190705
  15. PROCHLORPERAZINE MALEATE. [Concomitant]
     Active Substance: PROCHLORPERAZINE MALEATE
     Indication: VOMITING
  16. TRAMADOL. [Concomitant]
     Active Substance: TRAMADOL
     Indication: ARTHRITIS BACTERIAL
  17. VANCOMYCIN [Concomitant]
     Active Substance: VANCOMYCIN
     Indication: DIARRHOEA INFECTIOUS
     Dosage: 125 MG, 2X/DAY (CONTINUE WHILE ON ANTIBIOTICS AND FOR 1 WEEK AFTER COMPLETION OF ANTIBIOTICS)
     Route: 048
  18. PENTAMIDINE [Concomitant]
     Active Substance: PENTAMIDINE
     Dosage: UNK
     Route: 042
     Dates: start: 20190706
  19. HEPARIN FLUSH [Concomitant]
     Active Substance: HEPARIN SODIUM
     Dosage: UNK
     Route: 042
  20. LORATADINE. [Concomitant]
     Active Substance: LORATADINE
     Dosage: 10 MG, 1X/DAY
     Route: 048
  21. TRAMADOL. [Concomitant]
     Active Substance: TRAMADOL
     Indication: PAIN
     Dosage: TAKE 1 TO 2 TABLETS, EVERY SIX HOURS AS NEEDED
     Route: 048
  22. ZOLPIDEM [Concomitant]
     Active Substance: ZOLPIDEM TARTRATE
     Indication: SLEEP DISORDER
     Dosage: 5 MG, AS NEEDED ( AT BEDTIME AS NEEDED)
     Route: 048
  23. NEUPOGEN [Concomitant]
     Active Substance: FILGRASTIM
     Indication: SUPPORTIVE CARE
     Dosage: UNK
     Dates: start: 20190705, end: 20190705
  24. MYCOPHENOLATE SODIUM [Concomitant]
     Active Substance: MYCOPHENOLATE SODIUM
     Indication: GRAFT VERSUS HOST DISEASE
     Dosage: 900 MG, 2X/DAY
     Route: 048
     Dates: start: 20190719
  25. BUSULFAN. [Concomitant]
     Active Substance: BUSULFAN
     Indication: TRANSPLANT
     Dosage: UNK
     Dates: start: 20190616, end: 201906
  26. URSODIOL. [Concomitant]
     Active Substance: URSODIOL
     Indication: VENOOCCLUSIVE DISEASE
     Dosage: 500 MG, 2X/DAY
     Route: 048
  27. CYCLOSPORINE. [Concomitant]
     Active Substance: CYCLOSPORINE
     Dosage: 200 MG, 2X/DAY
     Route: 048
     Dates: start: 20190705
  28. MEROPENEM. [Concomitant]
     Active Substance: MEROPENEM
     Indication: ARTHRITIS BACTERIAL
  29. OMEPRAZOLE. [Concomitant]
     Active Substance: OMEPRAZOLE
     Indication: GASTROOESOPHAGEAL REFLUX DISEASE
     Dosage: 40 MG, UNK (BEFORE BREAKFAST)
     Route: 048
  30. DOCUSATE SODIUM/SENNOSIDE A+B [Concomitant]
     Indication: CONSTIPATION
     Dosage: 1 DF, 2X/DAY (ADJUST AS NEEDED, CUT BACK IF STOOLS TOO SOFT. MAY INCREASE UP TO 3 TABS TWICE DAILY I

REACTIONS (20)
  - Back pain [Unknown]
  - Venoocclusive liver disease [Not Recovered/Not Resolved]
  - Arthritis infective [Unknown]
  - Decreased appetite [Unknown]
  - Ascites [Not Recovered/Not Resolved]
  - Abdominal distension [Unknown]
  - Pneumonia klebsiella [Unknown]
  - Weight increased [Unknown]
  - Nausea [Unknown]
  - Asthenia [Unknown]
  - Fatigue [Unknown]
  - Death [Fatal]
  - Thrombocytopenia [Unknown]
  - Bacteraemia [Unknown]
  - Pain [Unknown]
  - Insomnia [Unknown]
  - Abdominal pain [Unknown]
  - Anaemia [Unknown]
  - Constipation [Unknown]
  - Pyrexia [Unknown]

NARRATIVE: CASE EVENT DATE: 20190715
